FAERS Safety Report 15938549 (Version 2)
Quarter: 2020Q1

REPORT INFORMATION
  Report Type: Report from Study
  Country: None (occurrence: SA)
  Receive Date: 20190208
  Receipt Date: 20200330
  Transmission Date: 20200409
  Serious: Yes (Death)
  Sender: FDA-Public Use
  Company Number: SA-ABBVIE-19S-259-2657091-00

PATIENT
  Age: 76 Year
  Sex: Male

DRUGS (1)
  1. DUODOPA [Suspect]
     Active Substance: CARBIDOPA\LEVODOPA
     Indication: PARKINSON^S DISEASE
     Dosage: 5 ML
     Route: 050
     Dates: start: 2012

REACTIONS (1)
  - Hypotension [Fatal]

NARRATIVE: CASE EVENT DATE: 20190104
